FAERS Safety Report 17897539 (Version 3)
Quarter: 2020Q4

REPORT INFORMATION
  Report Type: Report from Study
  Country: None (occurrence: US)
  Receive Date: 20200616
  Receipt Date: 20201013
  Transmission Date: 20210113
  Serious: Yes (Hospitalization)
  Sender: FDA-Public Use
  Company Number: US-ABBVIE-20K-163-3444630-00

PATIENT
  Age: 71 Year
  Sex: Female
  Weight: 74.91 kg

DRUGS (5)
  1. GABAPENTINE [Concomitant]
     Active Substance: GABAPENTIN
     Indication: PAIN
  2. NAPROXEN. [Concomitant]
     Active Substance: NAPROXEN
     Indication: RHEUMATOID ARTHRITIS
  3. METHOTREXATE. [Concomitant]
     Active Substance: METHOTREXATE
     Indication: RHEUMATOID ARTHRITIS
  4. HUMIRA [Suspect]
     Active Substance: ADALIMUMAB
     Route: 058
     Dates: start: 20200417, end: 20200417
  5. HUMIRA [Suspect]
     Active Substance: ADALIMUMAB
     Indication: RHEUMATOID ARTHRITIS
     Route: 058
     Dates: start: 20190918, end: 202003

REACTIONS (8)
  - Liver disorder [Recovered/Resolved]
  - Gait disturbance [Not Recovered/Not Resolved]
  - Intentional product misuse [Unknown]
  - Flatulence [Recovering/Resolving]
  - Cardiac arrest [Recovered/Resolved]
  - Immunosuppression [Not Recovered/Not Resolved]
  - Pneumococcal sepsis [Recovered/Resolved]
  - Pneumothorax [Recovered/Resolved]

NARRATIVE: CASE EVENT DATE: 2020
